FAERS Safety Report 25008453 (Version 1)
Quarter: 2025Q1

REPORT INFORMATION
  Report Type: Spontaneous
  Country: NL (occurrence: NL)
  Receive Date: 20250225
  Receipt Date: 20250225
  Transmission Date: 20250408
  Serious: Yes (Death, Hospitalization, Other)
  Sender: MYLAN
  Company Number: NL-MYLANLABS-2025M1014188

PATIENT
  Age: 5 Decade
  Sex: Male

DRUGS (6)
  1. METHOTREXATE [Suspect]
     Active Substance: METHOTREXATE
     Indication: Sarcoidosis
  2. TAMOXIFEN [Suspect]
     Active Substance: TAMOXIFEN
     Indication: Encapsulating peritoneal sclerosis
     Dosage: 20 MILLIGRAM, BID
  3. INFLIXIMAB [Suspect]
     Active Substance: INFLIXIMAB
     Indication: Sarcoidosis
  4. ADALIMUMAB [Suspect]
     Active Substance: ADALIMUMAB
     Indication: Sarcoidosis
  5. METHYLPREDNISOLONE [Suspect]
     Active Substance: METHYLPREDNISOLONE
     Indication: Sarcoidosis
     Dosage: 1 GRAM, MONTHLY
  6. METHYLPREDNISOLONE [Suspect]
     Active Substance: METHYLPREDNISOLONE
     Indication: Encapsulating peritoneal sclerosis

REACTIONS (2)
  - Drug ineffective [Fatal]
  - Myelosuppression [Unknown]
